FAERS Safety Report 9193198 (Version 1)
Quarter: 2013Q1

REPORT INFORMATION
  Report Type: Spontaneous
  Country: IT (occurrence: IT)
  Receive Date: 20130327
  Receipt Date: 20130327
  Transmission Date: 20140127
  Serious: Yes (Hospitalization)
  Sender: FDA-Public Use
  Company Number: IT-ABBOTT-13X-083-1067182-00

PATIENT
  Age: 25 Year
  Sex: Male

DRUGS (2)
  1. KLACID [Suspect]
     Indication: BRONCHITIS
     Route: 048
     Dates: start: 20130124, end: 20130201
  2. TACHIPIRINA [Suspect]
     Indication: PRODUCT USED FOR UNKNOWN INDICATION
     Dosage: 1500 MG
     Route: 048
     Dates: start: 20130124, end: 20130201

REACTIONS (2)
  - Medication error [Recovered/Resolved]
  - Angioedema [Not Recovered/Not Resolved]
